FAERS Safety Report 13693940 (Version 1)
Quarter: 2017Q2

REPORT INFORMATION
  Report Type: Spontaneous
  Country: US (occurrence: US)
  Receive Date: 20170626
  Receipt Date: 20170626
  Transmission Date: 20170830
  Serious: Yes (Hospitalization)
  Sender: FDA-Public Use
  Company Number: None

PATIENT
  Age: 25 Year
  Sex: Male
  Weight: 67.5 kg

DRUGS (2)
  1. CHAMOMILE [Concomitant]
     Active Substance: CHAMOMILE
  2. LORAZEPAM 1MG [Suspect]
     Active Substance: LORAZEPAM
     Indication: ANXIETY
     Route: 048
     Dates: start: 20170101, end: 20170612

REACTIONS (11)
  - Dyspnoea [None]
  - Abdominal pain upper [None]
  - Dizziness [None]
  - Nervousness [None]
  - Panic disorder [None]
  - Heart rate increased [None]
  - Withdrawal syndrome [None]
  - Tremor [None]
  - Palpitations [None]
  - Blood pressure increased [None]
  - Chest pain [None]

NARRATIVE: CASE EVENT DATE: 20170612
